FAERS Safety Report 11626429 (Version 1)
Quarter: 2015Q4

REPORT INFORMATION
  Report Type: Spontaneous
  Country: US (occurrence: US)
  Receive Date: 20151013
  Receipt Date: 20151013
  Transmission Date: 20160304
  Serious: No
  Sender: FDA-Public Use
  Company Number: US-ROCHE-1579972

PATIENT
  Age: 64 Year
  Sex: Female

DRUGS (1)
  1. ZELBORAF [Suspect]
     Active Substance: VEMURAFENIB
     Indication: LOCAL SWELLING
     Dosage: TAKE 4 TABLETS BY MOUTH TWICE A DAY?SWALLOW WHOLE WITH A GLASS OF WATER OR WITHOUT FOOD
     Route: 048
     Dates: start: 20150421

REACTIONS (4)
  - Vomiting [Not Recovered/Not Resolved]
  - Pruritus [Not Recovered/Not Resolved]
  - Nausea [Not Recovered/Not Resolved]
  - Urticaria [Not Recovered/Not Resolved]

NARRATIVE: CASE EVENT DATE: 20150501
